FAERS Safety Report 6998260-6 (Version None)
Quarter: 2010Q3

REPORT INFORMATION
  Report Type: 
  Country: None (occurrence: None)
  Receive Date: 20100920
  Receipt Date: 20100621
  Transmission Date: 20110219
  Serious: No
  Sender: FDA-Public Use
  Company Number: US-ASTRAZENECA-2010SE28914

PATIENT
  Age: 50 Year
  Sex: Male

DRUGS (4)
  1. SEROQUEL XR [Suspect]
     Indication: DEPRESSION
     Route: 048
     Dates: start: 20100601, end: 20100601
  2. CYMBALTA [Concomitant]
  3. LORTAB [Concomitant]
  4. XANAX [Concomitant]

REACTIONS (3)
  - AMNESIA [None]
  - ANGER [None]
  - CONFUSIONAL STATE [None]
